FAERS Safety Report 19570938 (Version 1)
Quarter: 2021Q3

REPORT INFORMATION
  Report Type: Other
  Country: US (occurrence: US)
  Receive Date: 20210716
  Receipt Date: 20210716
  Transmission Date: 20211014
  Serious: No
  Sender: FDA-Public Use
  Company Number: US-UROVANT SCIENCES GMBH-202104-URV-000152

PATIENT
  Age: 52 Year
  Sex: Female

DRUGS (1)
  1. GEMTESA [Suspect]
     Active Substance: VIBEGRON
     Indication: HYPERTONIC BLADDER
     Dosage: UNKNOWN
     Route: 065

REACTIONS (3)
  - Micturition urgency [Unknown]
  - Off label use [Not Recovered/Not Resolved]
  - Urinary retention [Recovered/Resolved]
